FAERS Safety Report 25699071 (Version 1)
Quarter: 2025Q3

REPORT INFORMATION
  Report Type: Other
  Country: EU (occurrence: EU)
  Receive Date: 20250819
  Receipt Date: 20250819
  Transmission Date: 20251020
  Serious: Yes (Hospitalization)
  Sender: Steriscience PTE
  Company Number: None

PATIENT
  Age: 33 Year
  Sex: Male

DRUGS (5)
  1. VANCOMYCIN [Suspect]
     Active Substance: VANCOMYCIN
     Indication: Pneumonia
     Route: 042
     Dates: start: 20250530, end: 20250712
  2. MEROPENEM [Suspect]
     Active Substance: MEROPENEM
     Indication: Pneumonia
     Route: 042
     Dates: start: 20250505, end: 20250719
  3. LEVOFLOXACIN [Suspect]
     Active Substance: LEVOFLOXACIN
     Indication: Pneumonia
     Route: 048
     Dates: start: 20250530
  4. ATOVAQUONE [Suspect]
     Active Substance: ATOVAQUONE
     Indication: Pneumonia
     Route: 042
     Dates: start: 20250530, end: 20250719
  5. BIKTARVY [Suspect]
     Active Substance: BICTEGRAVIR SODIUM\EMTRICITABINE\TENOFOVIR ALAFENAMIDE FUMARATE
     Indication: HIV infection
     Route: 042
     Dates: start: 20250513, end: 20250719

REACTIONS (2)
  - Hepatic cytolysis [None]
  - Cholestasis [None]

NARRATIVE: CASE EVENT DATE: 20250708
